FAERS Safety Report 6239588-7 (Version None)
Quarter: 2009Q2

REPORT INFORMATION
  Report Type: 
  Country: None (occurrence: None)
  Receive Date: 20090619
  Receipt Date: 20090617
  Transmission Date: 20091009
  Serious: Yes (Life-Threatening, Hospitalization)
  Sender: FDA-Public Use
  Company Number: SP02434

PATIENT
  Age: 55 Year
  Sex: Male

DRUGS (2)
  1. MOVIPREP [Suspect]
     Indication: COLONOSCOPY
     Dosage: ORAL
     Route: 048
     Dates: start: 20090419, end: 20090419
  2. UNSPECIFIED CARDIAC MEDICATION [Concomitant]

REACTIONS (1)
  - SHOCK [None]
